FAERS Safety Report 8772512 (Version 3)
Quarter: 2013Q4

REPORT INFORMATION
  Report Type: Spontaneous
  Country: GB (occurrence: GB)
  Receive Date: 20120905
  Receipt Date: 20131031
  Transmission Date: 20140711
  Serious: Yes (Other)
  Sender: FDA-Public Use
  Company Number: GB-009507513-1202USA04088

PATIENT
  Age: 8 Year
  Sex: Female

DRUGS (3)
  1. DEXAMETHASONE TABLETS BP 2.0MG [Suspect]
     Dosage: 6 MG/M2, QD
     Route: 048
  2. VINCRISTINE SULFATE [Concomitant]
     Dosage: 1.5 MG/M2, QW
     Route: 042
  3. ASPARAGINASE (AS DRUG) [Suspect]
     Dosage: 1000 UNITS /M2 ON DAYS 4 AND 18
     Route: 030

REACTIONS (3)
  - Hyperbilirubinaemia [Unknown]
  - Subclavian vein thrombosis [Unknown]
  - Hypertriglyceridaemia [Unknown]
